FAERS Safety Report 11856804 (Version 1)
Quarter: 2015Q4

REPORT INFORMATION
  Report Type: Spontaneous
  Country: IN (occurrence: IN)
  Receive Date: 20151221
  Receipt Date: 20151221
  Transmission Date: 20160305
  Serious: Yes (Other)
  Sender: FDA-Public Use
  Company Number: IN-ROXANE LABORATORIES, INC.-2015-RO-02108RO

PATIENT
  Age: 49 Year
  Sex: Male

DRUGS (5)
  1. PARICALCITOL. [Concomitant]
     Active Substance: PARICALCITOL
     Indication: CHRONIC KIDNEY DISEASE
     Route: 065
  2. CILNIDIPINE [Concomitant]
     Active Substance: CILNIDIPINE
     Indication: CHRONIC KIDNEY DISEASE
     Route: 065
  3. CALCIUM ACETATE. [Concomitant]
     Active Substance: CALCIUM ACETATE
     Indication: CHRONIC KIDNEY DISEASE
     Route: 065
  4. FERROUS ASCORBATE [Concomitant]
     Indication: CHRONIC KIDNEY DISEASE
     Route: 065
  5. TORSEMIDE. [Suspect]
     Active Substance: TORSEMIDE
     Indication: CHRONIC KIDNEY DISEASE
     Route: 065

REACTIONS (1)
  - Pseudoporphyria [Recovered/Resolved]
